FAERS Safety Report 18225452 (Version 1)
Quarter: 2020Q3

REPORT INFORMATION
  Report Type: Spontaneous
  Country: FR (occurrence: FR)
  Receive Date: 20200903
  Receipt Date: 20200903
  Transmission Date: 20201103
  Serious: Yes (Other)
  Sender: FDA-Public Use
  Company Number: FR-ABBVIE-20P-056-3551321-00

PATIENT
  Age: 67 Year
  Sex: Male

DRUGS (3)
  1. ENANTONE LP [Suspect]
     Active Substance: LEUPROLIDE ACETATE
     Route: 051
     Dates: end: 202005
  2. ENANTONE LP [Suspect]
     Active Substance: LEUPROLIDE ACETATE
     Indication: PROSTATE CANCER METASTATIC
     Route: 058
  3. ENANTONE LP [Suspect]
     Active Substance: LEUPROLIDE ACETATE
     Indication: PROSTATE CANCER METASTATIC
     Route: 058
     Dates: start: 201909

REACTIONS (6)
  - Injection site abscess [Not Recovered/Not Resolved]
  - Peripheral nerve lesion [Not Recovered/Not Resolved]
  - Skin reaction [Unknown]
  - Injection site haematoma [Not Recovered/Not Resolved]
  - Injection site pain [Unknown]
  - Injection site nodule [Unknown]

NARRATIVE: CASE EVENT DATE: 2019
